FAERS Safety Report 8893436 (Version 1)
Quarter: 2012Q4

REPORT INFORMATION
  Report Type: Report from Study
  Country: US (occurrence: US)
  Receive Date: 20121108
  Receipt Date: 20121108
  Transmission Date: 20130627
  Serious: Yes (Other)
  Sender: FDA-Public Use
  Company Number: US-JNJFOC-20121017510

PATIENT
  Age: 43 Year
  Sex: Female
  Weight: 57.15 kg

DRUGS (6)
  1. REMICADE [Suspect]
     Indication: PSORIATIC ARTHROPATHY
     Dosage: 3rd infusion
     Route: 042
     Dates: start: 20121023, end: 20121023
  2. REMICADE [Suspect]
     Indication: PSORIATIC ARTHROPATHY
     Dosage: 3 initiating dodes
     Route: 042
     Dates: start: 20120911
  3. BENADRYL [Suspect]
     Indication: ADVERSE DRUG REACTION
     Route: 042
     Dates: start: 20121023, end: 20121023
  4. BENADRYL [Suspect]
     Indication: ADVERSE DRUG REACTION
     Route: 042
     Dates: start: 20120911, end: 20120911
  5. STEROIDS NOS [Suspect]
     Indication: ADVERSE DRUG REACTION
     Route: 065
     Dates: start: 20120911
  6. ALBUTEROL [Concomitant]
     Indication: ASTHMA
     Route: 055

REACTIONS (9)
  - Swelling [Recovered/Resolved]
  - Urticaria [Recovered/Resolved]
  - Migraine [Recovered/Resolved]
  - Infusion related reaction [Recovered/Resolved]
  - Hyperhidrosis [Recovered/Resolved]
  - Erythema [Recovering/Resolving]
  - Pruritus [Recovered/Resolved]
  - Dizziness [Recovered/Resolved]
  - Dizziness [Recovered/Resolved]
